FAERS Safety Report 23045597 (Version 1)
Quarter: 2023Q4

REPORT INFORMATION
  Report Type: Spontaneous
  Country: US (occurrence: US)
  Receive Date: 20231009
  Receipt Date: 20231009
  Transmission Date: 20240110
  Serious: Yes (Other)
  Sender: FDA-Public Use
  Company Number: US-INCYTE CORPORATION-2023IN010218

PATIENT

DRUGS (1)
  1. JAKAFI [Suspect]
     Active Substance: RUXOLITINIB
     Indication: Polycythaemia vera
     Dosage: 10 MILLIGRAM, BID
     Route: 048
     Dates: start: 20230322

REACTIONS (6)
  - Leukocytosis [Unknown]
  - Myeloproliferative neoplasm [Unknown]
  - Thrombocytopenia [Unknown]
  - Polycythaemia vera [Unknown]
  - Splenomegaly [Unknown]
  - Disease progression [Unknown]
